FAERS Safety Report 9419422 (Version 2)
Quarter: 2013Q4

REPORT INFORMATION
  Report Type: Spontaneous
  Country: GB (occurrence: GB)
  Receive Date: 20130725
  Receipt Date: 20131106
  Transmission Date: 20140711
  Serious: Yes (Death, Congenital Anomaly, Other)
  Sender: FDA-Public Use
  Company Number: GB-PFIZER INC-2013216551

PATIENT
  Sex: 0

DRUGS (2)
  1. GABAPENTIN [Suspect]
     Indication: NEURALGIA
     Dosage: 200 MG, 3X/DAY
     Route: 064
     Dates: start: 200905
  2. REBIF [Suspect]
     Indication: MULTIPLE SCLEROSIS
     Dosage: 22 UG, UNK
     Route: 064
     Dates: start: 201205, end: 201303

REACTIONS (3)
  - Maternal exposure during pregnancy [Fatal]
  - Foetal cardiac disorder [Fatal]
  - Ventricular septal defect [Fatal]
